FAERS Safety Report 6553660-3 (Version None)
Quarter: 2010Q1

REPORT INFORMATION
  Report Type: 
  Country: None (occurrence: None)
  Receive Date: 20100127
  Receipt Date: 20100114
  Transmission Date: 20100710
  Serious: Yes (Hospitalization)
  Sender: FDA-Public Use
  Company Number: PHEH2010US00791

PATIENT
  Sex: Male

DRUGS (18)
  1. GLEEVEC [Suspect]
     Indication: CHRONIC MYELOID LEUKAEMIA
     Dosage: 400 MG, QD
     Route: 048
     Dates: start: 20091001, end: 20091201
  2. INSULIN [Concomitant]
     Indication: DIABETES MELLITUS
     Dosage: SLIDING SCALE BEFORE MEALS AND AFTER BEDTIME
  3. LOVASTATIN [Concomitant]
     Dosage: 40 MG, QHS
     Route: 048
  4. GLYBURIDE [Concomitant]
  5. LISINOPRIL [Concomitant]
  6. ARICEPT [Concomitant]
     Dosage: 10 MG, QHS
  7. METFORMIN [Concomitant]
  8. COMPAZINE [Concomitant]
  9. AMBIEN [Concomitant]
  10. MAGNESIUM OXIDE [Concomitant]
     Dosage: 500 MG, BID
  11. METOPROLOL [Concomitant]
     Dosage: 5 MG, Q12H
     Route: 042
  12. NYSTATIN [Concomitant]
     Dosage: 5000000 U, Q8H
     Dates: end: 20100105
  13. ACETAMINOPHEN [Concomitant]
     Dosage: 650 MG, PRN
     Route: 054
  14. ALBUTEROL SULFATE AND IPRATROPIUM BROMIDE [Concomitant]
     Dosage: 3 CC INHALATION PRN Q6H PRN
  15. HYDROCODONE [Concomitant]
     Dosage: 10 ML PER TUBE Q6H PRN
  16. LORAZEPAM [Concomitant]
     Dosage: 1 MG PER TUBE Q3H PRN
  17. ONDANSETRON [Concomitant]
     Dosage: 4 MG IV Q4H PRN
  18. LACTOBACILLUS [Concomitant]
     Dosage: 2 TABS PER TUBE TID

REACTIONS (37)
  - ABDOMINAL PAIN [None]
  - ACUTE RESPIRATORY FAILURE [None]
  - ALANINE AMINOTRANSFERASE INCREASED [None]
  - ASPARTATE AMINOTRANSFERASE INCREASED [None]
  - BLOOD ALKALINE PHOSPHATASE INCREASED [None]
  - BLOOD CALCIUM DECREASED [None]
  - CARBON DIOXIDE DECREASED [None]
  - CHOLELITHIASIS [None]
  - DIABETES MELLITUS INADEQUATE CONTROL [None]
  - DIARRHOEA [None]
  - DYSPHAGIA [None]
  - GASTROINTESTINAL INFECTION [None]
  - HAEMATOCRIT DECREASED [None]
  - HYPERLIPIDAEMIA [None]
  - HYPONATRAEMIA [None]
  - HYPOTENSION [None]
  - HYPOTONIA [None]
  - LIPASE INCREASED [None]
  - LIVER ABSCESS [None]
  - LOSS OF CONSCIOUSNESS [None]
  - MALNUTRITION [None]
  - MEAN CELL VOLUME ABNORMAL [None]
  - METABOLIC ACIDOSIS [None]
  - MULTI-ORGAN FAILURE [None]
  - NAUSEA [None]
  - OEDEMA PERIPHERAL [None]
  - OLIGURIA [None]
  - OSTEOARTHRITIS [None]
  - OSTEOPENIA [None]
  - PANCREATITIS [None]
  - PYREXIA [None]
  - RENAL FAILURE ACUTE [None]
  - SEPSIS [None]
  - SUPRAVENTRICULAR TACHYCARDIA [None]
  - THROMBOCYTOPENIA [None]
  - VOMITING [None]
  - WHITE BLOOD CELL COUNT DECREASED [None]
